FAERS Safety Report 6842466-3 (Version None)
Quarter: 2010Q3

REPORT INFORMATION
  Report Type: 
  Country: None (occurrence: None)
  Receive Date: 20100709
  Receipt Date: 20100625
  Transmission Date: 20110219
  Serious: Yes (Hospitalization)
  Sender: FDA-Public Use
  Company Number: GER/UKI/10/0013337

PATIENT
  Age: 44 Year
  Sex: Male
  Weight: 43.04 kg

DRUGS (9)
  1. LAMOTRIGINE [Suspect]
     Indication: MOOD SWINGS
     Dosage: 25 MG, 2 IN 1 D, ORAL
     Route: 048
     Dates: start: 20100427, end: 20100513
  2. AMISUIPRIDE (AMISULPRIDE) [Concomitant]
  3. CITALOPRAM HYDROBROMIDE [Concomitant]
  4. CLOZARIL [Concomitant]
  5. COD LIVER OIL FORTIFIED TAB [Concomitant]
  6. HYOSCINE HYDROBROMIDE (HYOSCINE HYDROBROMIDE) [Concomitant]
  7. SALBUTAMOL (SALBITAMOL) [Concomitant]
  8. SIMVASTATIN (SIMMASTATIN) [Concomitant]
  9. VALPRAIC ACID (VALPROATE SODIUM) [Concomitant]

REACTIONS (7)
  - CONFUSIONAL STATE [None]
  - PYREXIA [None]
  - RASH GENERALISED [None]
  - SOMNOLENCE [None]
  - SPUTUM DISCOLOURED [None]
  - TACHYCARDIA [None]
  - VOMITING [None]
